FAERS Safety Report 5606234-2 (Version None)
Quarter: 2008Q1

REPORT INFORMATION
  Report Type: 
  Country: None (occurrence: None)
  Receive Date: 20080129
  Receipt Date: 20070306
  Transmission Date: 20080703
  Serious: No
  Sender: FDA-Public Use
  Company Number: A0642095A

PATIENT
  Sex: Female

DRUGS (1)
  1. BUPROPION HYDROCHLORIDE [Suspect]
     Indication: DEPRESSION
     Route: 048
     Dates: end: 20070201

REACTIONS (2)
  - MOOD SWINGS [None]
  - PANIC ATTACK [None]
